FAERS Safety Report 17018273 (Version 1)
Quarter: 2019Q4

REPORT INFORMATION
  Report Type: Spontaneous
  Country: CN (occurrence: CN)
  Receive Date: 20191111
  Receipt Date: 20191111
  Transmission Date: 20200122
  Serious: Yes (Hospitalization, Other)
  Sender: FDA-Public Use
  Company Number: CN-DSJP-DSJ-2019-143762AA

PATIENT

DRUGS (2)
  1. OLMESARTAN MEDOXOMIL HYDROCHLOROTHIAZIDE [Suspect]
     Active Substance: HYDROCHLOROTHIAZIDE\OLMESARTAN MEDOXOMIL
     Indication: HYPERTENSION
     Dosage: 20/12.5 MG, QD
     Route: 048
     Dates: start: 20190729, end: 20191022
  2. BISOPROLOL FUMARATE. [Suspect]
     Active Substance: BISOPROLOL FUMARATE
     Indication: HYPERTENSION
     Dosage: 5 MG, QD
     Route: 048
     Dates: start: 20190729, end: 20191022

REACTIONS (11)
  - Asthenia [Unknown]
  - Dizziness [Unknown]
  - Lacunar infarction [Unknown]
  - Aortic arteriosclerosis [Unknown]
  - Hepatic calcification [Unknown]
  - Blood sodium decreased [Recovering/Resolving]
  - Myalgia [Unknown]
  - Cardiac ventriculogram abnormal [Unknown]
  - Hepatic cyst [Unknown]
  - Cerebral atrophy [Unknown]
  - Cerebral small vessel ischaemic disease [Unknown]

NARRATIVE: CASE EVENT DATE: 20191018
